FAERS Safety Report 10250606 (Version 2)
Quarter: 2014Q3

REPORT INFORMATION
  Report Type: Spontaneous
  Country: US (occurrence: US)
  Receive Date: 20140620
  Receipt Date: 20140805
  Transmission Date: 20150326
  Serious: Yes (Other)
  Sender: FDA-Public Use
  Company Number: US-GLAXOSMITHKLINE-A1077791A

PATIENT
  Age: 64 Year
  Sex: Male
  Weight: 111.4 kg

DRUGS (3)
  1. OXYGEN THERAPY [Suspect]
     Active Substance: OXYGEN
     Indication: PRODUCT USED FOR UNKNOWN INDICATION
     Route: 065
  2. ANORO ELLIPTA [Suspect]
     Active Substance: UMECLIDINIUM BROMIDE\VILANTEROL TRIFENATATE
     Indication: DYSPNOEA
     Route: 065
     Dates: start: 20140515, end: 20140612
  3. ADVAIR DISKUS [Suspect]
     Active Substance: FLUTICASONE PROPIONATE\SALMETEROL XINAFOATE
     Indication: PRODUCT USED FOR UNKNOWN INDICATION
     Route: 065
     Dates: start: 20040615, end: 20140613

REACTIONS (6)
  - Dizziness [Unknown]
  - Anxiety [Unknown]
  - Therapy cessation [Unknown]
  - Chronic obstructive pulmonary disease [Recovering/Resolving]
  - Viral infection [Recovering/Resolving]
  - Oxygen supplementation [Unknown]

NARRATIVE: CASE EVENT DATE: 20140612
